FAERS Safety Report 21315118 (Version 17)
Quarter: 2024Q3

REPORT INFORMATION
  Report Type: Spontaneous
  Country: US (occurrence: US)
  Receive Date: 20220909
  Receipt Date: 20240709
  Transmission Date: 20241017
  Serious: Yes (Hospitalization, Other)
  Sender: PFIZER
  Company Number: US-PFIZER INC-202201139363

PATIENT
  Age: 88 Year
  Sex: Male
  Weight: 64.86 kg

DRUGS (6)
  1. VYNDAMAX [Suspect]
     Active Substance: TAFAMIDIS
     Indication: Acquired ATTR amyloidosis
     Dosage: 61 MG
  2. VYNDAMAX [Suspect]
     Active Substance: TAFAMIDIS
     Indication: Amyloidosis
     Dosage: 61 MG, 1X/DAY  (IN THE MIDDLE OF THE DAY)
     Route: 048
  3. VYNDAMAX [Suspect]
     Active Substance: TAFAMIDIS
     Dosage: 61 MG, 1X/DAY
  4. VYNDAMAX [Suspect]
     Active Substance: TAFAMIDIS
     Dosage: 61 MG, 1X/DAY
  5. VYNDAMAX [Suspect]
     Active Substance: TAFAMIDIS
     Dosage: 61 MG, 1X/DAY
  6. ELIQUIS [Concomitant]
     Active Substance: APIXABAN
     Indication: Anticoagulant therapy
     Dosage: 2.5 MG, 2X/DAY

REACTIONS (24)
  - Gallbladder disorder [Recovered/Resolved with Sequelae]
  - Myocardial infarction [Unknown]
  - Hypothyroidism [Unknown]
  - Cardiac failure [Unknown]
  - Choking [Unknown]
  - Carpal tunnel syndrome [Unknown]
  - COVID-19 [Not Recovered/Not Resolved]
  - Platelet count decreased [Unknown]
  - Body height decreased [Unknown]
  - Posture abnormal [Unknown]
  - Gastrointestinal disorder [Unknown]
  - Malnutrition [Not Recovered/Not Resolved]
  - Weight decreased [Not Recovered/Not Resolved]
  - Malaise [Unknown]
  - Gait inability [Unknown]
  - Laboratory test abnormal [Unknown]
  - Condition aggravated [Unknown]
  - Asthenia [Unknown]
  - Gait disturbance [Unknown]
  - Illness [Unknown]
  - Respiratory syncytial virus infection [Unknown]
  - Pruritus [Unknown]
  - Dysphagia [Unknown]
  - Memory impairment [Unknown]

NARRATIVE: CASE EVENT DATE: 20200101
